FAERS Safety Report 25808758 (Version 1)
Quarter: 2025Q3

REPORT INFORMATION
  Report Type: Spontaneous
  Country: US (occurrence: None)
  Receive Date: 20250915
  Receipt Date: 20250915
  Transmission Date: 20251020
  Serious: Yes (Other)
  Sender: FDA-CTU
  Company Number: None

PATIENT

DRUGS (1)
  1. MIPASTE PLUS MINT [Suspect]
     Active Substance: SODIUM FLUORIDE

REACTIONS (4)
  - No reaction on previous exposure to drug [None]
  - Viral infection [None]
  - Anaphylactic reaction [None]
  - Product administered from unauthorised provider [None]

NARRATIVE: CASE EVENT DATE: 20250909
